FAERS Safety Report 6494324-4 (Version None)
Quarter: 2009Q4

REPORT INFORMATION
  Report Type: 
  Country: None (occurrence: None)
  Receive Date: 20091214
  Receipt Date: 20090209
  Transmission Date: 20100525
  Serious: No
  Sender: FDA-Public Use
  Company Number: US-BRISTOL-MYERS SQUIBB COMPANY-14498448

PATIENT
  Age: 72 Year
  Sex: Female

DRUGS (2)
  1. ABILIFY [Suspect]
     Indication: MAJOR DEPRESSION
  2. CYMBALTA [Concomitant]

REACTIONS (1)
  - HEADACHE [None]
